FAERS Safety Report 10695733 (Version 1)
Quarter: 2015Q1

REPORT INFORMATION
  Report Type: Spontaneous
  Country: US (occurrence: US)
  Receive Date: 20150107
  Receipt Date: 20150107
  Transmission Date: 20150721
  Serious: No
  Sender: FDA-Public Use
  Company Number: US-PFIZER INC-2014358374

PATIENT
  Age: 58 Year
  Sex: Male

DRUGS (11)
  1. CELEXA [Concomitant]
     Active Substance: CITALOPRAM HYDROBROMIDE
     Dosage: 20 MG, 1X/DAY
  2. LISINOPRIL. [Concomitant]
     Active Substance: LISINOPRIL
     Dosage: 25 MG, DAILY
  3. COREG [Concomitant]
     Active Substance: CARVEDILOL
     Dosage: 12.5 MG, DAILY
  4. KLOR CON [Concomitant]
     Dosage: 10 MG, UNK
  5. LYRICA [Suspect]
     Active Substance: PREGABALIN
     Indication: NEUROPATHY PERIPHERAL
     Dosage: 150 MG, 2X/DAY
     Dates: start: 20141110
  6. AXIRON [Concomitant]
     Active Substance: TESTOSTERONE
     Dosage: 60 ML, 2X/DAY
  7. NEURONTIN [Concomitant]
     Active Substance: GABAPENTIN
     Dosage: UNK, 3X/DAY
  8. METFORMIN [Concomitant]
     Active Substance: METFORMIN HYDROCHLORIDE
     Dosage: 500 MG, 2X/DAY
  9. TENORMIN [Concomitant]
     Active Substance: ATENOLOL
     Dosage: 50 MG, DAILY
  10. POTASSIUM [Concomitant]
     Active Substance: POTASSIUM
     Dosage: 10 ?G, DAILY
  11. ZOCOR [Concomitant]
     Active Substance: SIMVASTATIN
     Dosage: 40 MG, DAILY

REACTIONS (1)
  - Drug ineffective [Unknown]
